FAERS Safety Report 14766130 (Version 1)
Quarter: 2018Q2

REPORT INFORMATION
  Report Type: Spontaneous
  Country: US (occurrence: US)
  Receive Date: 20180416
  Receipt Date: 20180416
  Transmission Date: 20180711
  Serious: Yes (Hospitalization, Other)
  Sender: FDA-Public Use
  Company Number: US-ASTELLAS-2017US015700

PATIENT
  Age: 63 Year
  Sex: Male

DRUGS (1)
  1. PROGRAF [Suspect]
     Active Substance: TACROLIMUS\TACROLIMUS ANHYDROUS
     Indication: RENAL TRANSPLANT
     Route: 048
     Dates: start: 20130508

REACTIONS (5)
  - Cellulitis [Recovering/Resolving]
  - Sepsis [Recovering/Resolving]
  - Cellulitis [Unknown]
  - Cellulitis [Unknown]
  - Cellulitis [Unknown]

NARRATIVE: CASE EVENT DATE: 2016
